FAERS Safety Report 8943184 (Version 2)
Quarter: 2013Q1

REPORT INFORMATION
  Report Type: Spontaneous
  Country: US (occurrence: US)
  Receive Date: 20121204
  Receipt Date: 20130122
  Transmission Date: 20140127
  Serious: No
  Sender: FDA-Public Use
  Company Number: US-009507513-1211USA012757

PATIENT
  Age: 18 None
  Sex: Female
  Weight: 65.31 kg

DRUGS (1)
  1. IMPLANON [Suspect]
     Indication: CONTRACEPTION
     Dosage: 1 DF, FOR 3 WEEK USE ON RIGHT ARM
     Dates: start: 20120216

REACTIONS (5)
  - Breast mass [Unknown]
  - Chest pain [Unknown]
  - Metrorrhagia [Unknown]
  - Headache [Unknown]
  - Hypoaesthesia [Unknown]
